FAERS Safety Report 12858341 (Version 2)
Quarter: 2016Q4

REPORT INFORMATION
  Report Type: Spontaneous
  Country: US (occurrence: US)
  Receive Date: 20161018
  Receipt Date: 20161213
  Transmission Date: 20170207
  Serious: No
  Sender: FDA-Public Use
  Company Number: US-PFIZER INC-2016484961

PATIENT
  Age: 37 Year
  Sex: Female
  Weight: 103 kg

DRUGS (7)
  1. DUAVEE [Suspect]
     Active Substance: BAZEDOXIFENE ACETATE\ESTROGENS, CONJUGATED
     Indication: MENOPAUSAL DISORDER
     Dosage: 1 DF, DAILY (BAZEDOXIFENE ACETATE: 0.45 MG/CONJUGATED ESTROGENS: 20 MG)
     Route: 048
     Dates: start: 20151110
  2. HALCION [Concomitant]
     Active Substance: TRIAZOLAM
     Indication: SLEEP DISORDER
     Dosage: 0.125 MG, DAILY (QHS)
     Route: 048
     Dates: start: 20141009
  3. VALIUM [Concomitant]
     Active Substance: DIAZEPAM
     Indication: ANXIETY
     Dosage: 10 MG, 4X/DAY`(QID )
     Dates: start: 20141009
  4. DUAVEE [Suspect]
     Active Substance: BAZEDOXIFENE ACETATE\ESTROGENS, CONJUGATED
     Indication: MENOPAUSAL SYMPTOMS
     Dosage: 1 DF, 1X/DAY BAZEDOXIFENE ACETATE: 0.45 MG/CONJUGATED ESTROGENS: 20 MG
     Route: 048
     Dates: start: 20141028
  5. NEURONTIN [Concomitant]
     Active Substance: GABAPENTIN
     Indication: BACK PAIN
     Dosage: 600 MG, 4X/DAY (QID)
     Route: 048
     Dates: start: 20141009
  6. ALBUTEROL. [Concomitant]
     Active Substance: ALBUTEROL
     Indication: ASTHMA
     Dosage: UNK UNK, 4X/DAY (4 TIMES DAILY)
     Dates: start: 20090508
  7. ASPIRIN. [Concomitant]
     Active Substance: ASPIRIN
     Dosage: 81 MG, UNK
     Dates: start: 20141009

REACTIONS (1)
  - Pelvic pain [Unknown]
